FAERS Safety Report 23642569 (Version 1)
Quarter: 2024Q1

REPORT INFORMATION
  Report Type: Spontaneous
  Country: US (occurrence: US)
  Receive Date: 20240318
  Receipt Date: 20240318
  Transmission Date: 20240410
  Serious: No
  Sender: FDA-Public Use
  Company Number: US-ESPERIONTHERAPEUTICS-2023USA01284

PATIENT
  Sex: Female

DRUGS (4)
  1. NEXLETOL [Suspect]
     Active Substance: BEMPEDOIC ACID
     Indication: Product used for unknown indication
     Dosage: UNK
     Route: 048
     Dates: start: 2022
  2. NEXLETOL [Suspect]
     Active Substance: BEMPEDOIC ACID
     Dosage: 180 MILLIGRAM, 4-5 TIMES A WEEK
     Route: 048
     Dates: start: 2023
  3. ROSUVASTATIN [Concomitant]
     Active Substance: ROSUVASTATIN
     Dosage: 10 MILLIGRAM
     Route: 065
     Dates: start: 2022
  4. ROSUVASTATIN [Concomitant]
     Active Substance: ROSUVASTATIN
     Dosage: 4 PILLS ON THE WEEKEND
     Route: 065
     Dates: start: 2023

REACTIONS (2)
  - Off label use [Unknown]
  - Hepatic enzyme increased [Recovered/Resolved]

NARRATIVE: CASE EVENT DATE: 20220101
